FAERS Safety Report 9245498 (Version 3)
Quarter: 2013Q3

REPORT INFORMATION
  Report Type: Spontaneous
  Country: JP (occurrence: JP)
  Receive Date: 20130422
  Receipt Date: 20130801
  Transmission Date: 20140515
  Serious: Yes (Hospitalization, Disabling)
  Sender: FDA-Public Use
  Company Number: JP-JNJFOC-20130407669

PATIENT
  Age: 53 Year
  Sex: Female
  Weight: 41 kg

DRUGS (16)
  1. TACROLIMUS [Suspect]
     Indication: RHEUMATOID ARTHRITIS
     Route: 065
     Dates: start: 2008
  2. FOLIC ACID [Concomitant]
     Dosage: 5 MG/WEEK
     Route: 048
     Dates: start: 20080624, end: 20120111
  3. METHOTREXATE [Concomitant]
     Indication: RHEUMATOID ARTHRITIS
     Dosage: 6 MG/WEEK
     Route: 048
     Dates: start: 20080617
  4. METHOTREXATE [Concomitant]
     Indication: RHEUMATOID ARTHRITIS
     Route: 048
     Dates: end: 20120111
  5. METHOTREXATE [Concomitant]
     Indication: RHEUMATOID ARTHRITIS
     Dosage: 4 MG/WEEK
     Route: 048
     Dates: start: 20080603
  6. ETANERCEPT [Concomitant]
     Indication: RHEUMATOID ARTHRITIS
     Route: 065
     Dates: start: 2009
  7. BONALON [Concomitant]
     Route: 048
     Dates: end: 20110111
  8. PREDNISOLONE [Concomitant]
     Route: 048
  9. CELECOX [Concomitant]
     Route: 048
  10. MUCOSTA [Concomitant]
     Route: 048
  11. REMICADE [Suspect]
     Indication: RHEUMATOID ARTHRITIS
     Route: 042
     Dates: start: 20090526
  12. REMICADE [Suspect]
     Indication: RHEUMATOID ARTHRITIS
     Dosage: 6TH INFUSION
     Route: 042
     Dates: start: 20090609
  13. REMICADE [Suspect]
     Indication: RHEUMATOID ARTHRITIS
     Route: 042
     Dates: start: 20090707
  14. REMICADE [Suspect]
     Indication: RHEUMATOID ARTHRITIS
     Route: 042
     Dates: start: 20090915
  15. REMICADE [Suspect]
     Indication: RHEUMATOID ARTHRITIS
     Route: 042
     Dates: start: 20091031
  16. REMICADE [Suspect]
     Indication: RHEUMATOID ARTHRITIS
     Route: 042
     Dates: start: 20091205

REACTIONS (1)
  - Cerebral infarction [Recovering/Resolving]
